FAERS Safety Report 5870196-3 (Version None)
Quarter: 2008Q3

REPORT INFORMATION
  Report Type: 
  Country: None (occurrence: None)
  Receive Date: 20080902
  Receipt Date: 20080822
  Transmission Date: 20090109
  Serious: Yes (Other)
  Sender: FDA-Public Use
  Company Number: 2008SP001581

PATIENT
  Age: 50 Year
  Sex: Male

DRUGS (4)
  1. PEGINTERFERON ALFA-2B (S-P) [Suspect]
     Indication: HEPATITIS C
     Dosage: SC
     Route: 058
     Dates: start: 20070810, end: 20080118
  2. RIBAVIRIN [Suspect]
     Indication: HEPATITIS C
     Dosage: PO
     Route: 048
     Dates: start: 20070810, end: 20080118
  3. AMBIEN [Suspect]
     Indication: INSOMNIA
  4. UNSPECIFIED BLOOD PRESSURE MEDICATION [Suspect]
     Indication: BLOOD PRESSURE

REACTIONS (17)
  - ANORECTAL DISCOMFORT [None]
  - BLOOD POTASSIUM DECREASED [None]
  - BLOOD PRESSURE INCREASED [None]
  - BURNING SENSATION [None]
  - DEHYDRATION [None]
  - EPISTAXIS [None]
  - HEAD DISCOMFORT [None]
  - HYPOPHAGIA [None]
  - LIVER DISORDER [None]
  - LOSS OF CONSCIOUSNESS [None]
  - MALAISE [None]
  - NAUSEA [None]
  - PRURITUS [None]
  - PYREXIA [None]
  - RECTAL HAEMORRHAGE [None]
  - SKIN EXFOLIATION [None]
  - SKIN FISSURES [None]
